FAERS Safety Report 12495813 (Version 1)
Quarter: 2016Q2

REPORT INFORMATION
  Report Type: Spontaneous
  Country: DE (occurrence: DE)
  Receive Date: 20160624
  Receipt Date: 20160624
  Transmission Date: 20160815
  Serious: Yes (Hospitalization)
  Sender: FDA-Public Use
  Company Number: DE-UCBSA-2016022520

PATIENT
  Age: 65 Year
  Sex: Male

DRUGS (1)
  1. LEGANTO [Suspect]
     Active Substance: ROTIGOTINE
     Indication: PARKINSON^S DISEASE
     Dosage: 2 MG, ONCE DAILY (QD)
     Route: 062

REACTIONS (5)
  - Alopecia [Unknown]
  - Constipation [Unknown]
  - Intestinal operation [Unknown]
  - Sensory loss [Not Recovered/Not Resolved]
  - Hallucination [Unknown]

NARRATIVE: CASE EVENT DATE: 2016
